FAERS Safety Report 4810922-5 (Version None)
Quarter: 2005Q4

REPORT INFORMATION
  Report Type: 
  Country: None (occurrence: None)
  Receive Date: 20051027
  Receipt Date: 20051012
  Transmission Date: 20060501
  Serious: Yes (Other)
  Sender: FDA-Public Use
  Company Number: AU-KINGPHARMUSA00001-K200501384

PATIENT
  Age: 77 Year
  Sex: Female

DRUGS (8)
  1. EPINEPHRINE [Suspect]
     Indication: ANAPHYLAXIS TREATMENT
     Dosage: 50 MCG, SINGLE
     Route: 042
  2. EPINEPHRINE [Suspect]
     Dosage: 50 MCG, SINGLE
     Route: 042
  3. EPINEPHRINE [Suspect]
     Dosage: 0.03-0.05 MCG/KG/MIN
     Route: 042
  4. SUCCINYLATED GELATIN [Concomitant]
     Dosage: 1 L, UNK
  5. HYDROCORTISONE [Concomitant]
     Dosage: 100 MG, UNK
     Route: 042
  6. PROMETHAZINE [Concomitant]
     Dosage: 25 MG, UNK
  7. ACETAMINOPHEN [Concomitant]
     Indication: ANALGESIC EFFECT
     Route: 054
  8. DICLOFENAC [Concomitant]
     Indication: ANALGESIC EFFECT
     Route: 054

REACTIONS (1)
  - ATRIAL FIBRILLATION [None]
